FAERS Safety Report 5076702-3 (Version None)
Quarter: 2006Q3

REPORT INFORMATION
  Report Type: 
  Country: None (occurrence: None)
  Receive Date: 20060725
  Receipt Date: 20060228
  Transmission Date: 20061208
  Serious: No
  Sender: FDA-Public Use
  Company Number: 200611220BWH

PATIENT
  Age: 70 Year
  Sex: Male
  Weight: 73.0291 kg

DRUGS (13)
  1. NEXAVAR [Suspect]
     Indication: LUNG NEOPLASM MALIGNANT
     Dosage: 400 MG, BID, ORAL
     Route: 048
     Dates: start: 20060222
  2. NEXAVAR [Suspect]
     Indication: RENAL CELL CARCINOMA STAGE UNSPECIFIED
     Dosage: 400 MG, BID, ORAL
     Route: 048
     Dates: start: 20060222
  3. FAMVIR [Concomitant]
  4. PREVACID [Concomitant]
  5. PLAVIX [Concomitant]
  6. LIPITOR [Concomitant]
  7. ATENOLOL [Concomitant]
  8. COZAAR [Concomitant]
  9. ZOLOFT [Concomitant]
  10. COMPAZINE [Concomitant]
  11. LORTAB [Concomitant]
  12. FLEXERIL [Concomitant]
  13. INTERFERON [Concomitant]

REACTIONS (11)
  - BURNING SENSATION [None]
  - CHEST PAIN [None]
  - COORDINATION ABNORMAL [None]
  - DIARRHOEA [None]
  - DRY MOUTH [None]
  - HEART RATE INCREASED [None]
  - LIP DRY [None]
  - LUNG INFECTION [None]
  - MEMORY IMPAIRMENT [None]
  - NAUSEA [None]
  - THIRST [None]
